FAERS Safety Report 6553729-3 (Version None)
Quarter: 2010Q1

REPORT INFORMATION
  Report Type: 
  Country: None (occurrence: None)
  Receive Date: 20100125
  Receipt Date: 20100107
  Transmission Date: 20100710
  Serious: Yes (Other)
  Sender: FDA-Public Use
  Company Number: 004191

PATIENT
  Sex: Male

DRUGS (1)
  1. TUSSIONEX [Suspect]
     Dosage: ORAL
     Route: 048

REACTIONS (3)
  - CONSTIPATION [None]
  - MALAISE [None]
  - OVERDOSE [None]
